FAERS Safety Report 23056321 (Version 1)
Quarter: 2023Q4

REPORT INFORMATION
  Report Type: Spontaneous
  Country: FR (occurrence: FR)
  Receive Date: 20231011
  Receipt Date: 20231011
  Transmission Date: 20240110
  Serious: Yes (Life-Threatening, Other)
  Sender: FDA-Public Use
  Company Number: FR-SANOFI US-2021SA421006

PATIENT
  Age: 84 Year
  Sex: Female
  Weight: 85 kg

DRUGS (17)
  1. CETIRIZINE HYDROCHLORIDE [Suspect]
     Active Substance: CETIRIZINE HYDROCHLORIDE
     Indication: Pruritus
     Dosage: DOSE DESCRIPTION : UNK
     Route: 065
     Dates: start: 20210831, end: 20211105
  2. LEVOCETIRIZINE DIHYDROCHLORIDE [Suspect]
     Active Substance: LEVOCETIRIZINE DIHYDROCHLORIDE
     Indication: Pruritus
     Dosage: DOSE DESCRIPTION : UNK
     Route: 065
     Dates: start: 20210831, end: 20211105
  3. HYDROCHLOROTHIAZIDE [Suspect]
     Active Substance: HYDROCHLOROTHIAZIDE
     Indication: Hypertension
     Dosage: DOSE DESCRIPTION : UNK
     Route: 065
     Dates: start: 20210724, end: 20210929
  4. BETAMETHASONE VALERATE [Suspect]
     Active Substance: BETAMETHASONE VALERATE
     Indication: Pruritus
     Dosage: DOSE DESCRIPTION : UNK
     Route: 003
     Dates: start: 20210901, end: 20210910
  5. FLUCONAZOLE [Suspect]
     Active Substance: FLUCONAZOLE
     Dosage: DOSE DESCRIPTION : UNK
     Route: 065
     Dates: start: 202110, end: 20211104
  6. APIXABAN [Suspect]
     Active Substance: APIXABAN
     Indication: Anticoagulant therapy
     Dosage: DOSE DESCRIPTION : 5 MG, BID
     Route: 048
     Dates: start: 20210820, end: 20211005
  7. OXYCODONE [Suspect]
     Active Substance: OXYCODONE
     Indication: Pain
     Dosage: DOSE DESCRIPTION : UNK
     Route: 065
     Dates: start: 20210820, end: 20210922
  8. FOSFOMYCIN [Suspect]
     Active Substance: FOSFOMYCIN
     Indication: Infection
     Dosage: DOSE DESCRIPTION : 1 DF
     Route: 048
     Dates: start: 20210923, end: 20210923
  9. CEFTAZIDIME [Suspect]
     Active Substance: CEFTAZIDIME
     Indication: Infection
     Dosage: DOSE DESCRIPTION : UNK
     Route: 065
     Dates: start: 20210807, end: 20210919
  10. CALCIUM PHOSPHATE, DIBASIC, ANHYDROUS\MAGNESIUM GLYCEROPHOSPHATE\PHOSP [Suspect]
     Active Substance: CALCIUM PHOSPHATE, DIBASIC, ANHYDROUS\MAGNESIUM GLYCEROPHOSPHATE\PHOSPHORIC ACID\SODIUM PHOSPHATE, D
     Indication: Hypovitaminosis
     Dosage: DOSE DESCRIPTION : UNK
     Route: 065
     Dates: start: 20210826, end: 20210902
  11. VOGALENE [Suspect]
     Active Substance: METOPIMAZINE
     Indication: Nausea
     Dosage: DOSE DESCRIPTION : IF NECESSARY
     Route: 048
     Dates: start: 20210916, end: 20210923
  12. CIPROFLOXACIN HYDROCHLORIDE [Suspect]
     Active Substance: CIPROFLOXACIN HYDROCHLORIDE
     Dosage: DOSE DESCRIPTION : UNK
     Route: 048
     Dates: start: 2021, end: 2021
  13. NALOXEGOL OXALATE [Suspect]
     Active Substance: NALOXEGOL OXALATE
     Indication: Constipation
     Dosage: DOSE DESCRIPTION : 1 DF, QD
     Route: 065
     Dates: start: 20210724, end: 20210928
  14. FLUCONAZOLE [Suspect]
     Active Substance: FLUCONAZOLE
     Route: 065
     Dates: start: 202110, end: 20211104
  15. BETAMETHASONE VALERATE [Suspect]
     Active Substance: BETAMETHASONE VALERATE
     Indication: Pruritus
     Route: 003
     Dates: start: 20210901, end: 20210910
  16. PANTOPRAZOLE [Concomitant]
     Active Substance: PANTOPRAZOLE
     Indication: Osteoarthritis
     Dosage: DOSE DESCRIPTION : UNK
     Route: 065
  17. PANTOPRAZOLE [Concomitant]
     Active Substance: PANTOPRAZOLE
     Indication: Scoliosis

REACTIONS (1)
  - Stevens-Johnson syndrome [Recovering/Resolving]

NARRATIVE: CASE EVENT DATE: 20211001
